FAERS Safety Report 14871744 (Version 1)
Quarter: 2018Q2

REPORT INFORMATION
  Report Type: Other
  Country: ES (occurrence: ES)
  Receive Date: 20180509
  Receipt Date: 20180509
  Transmission Date: 20180711
  Serious: Yes (Hospitalization, Other)
  Sender: FDA-Public Use
  Company Number: ES-DEXPHARM-20180315

PATIENT
  Age: 42 Year
  Sex: Male

DRUGS (4)
  1. OMEPRAZOLE. [Suspect]
     Active Substance: OMEPRAZOLE
  2. IBUPROFEN. [Suspect]
     Active Substance: IBUPROFEN
     Dosage: 600MG/8H FOR 5-7 DAYS
  3. RANITIDINE. [Concomitant]
     Active Substance: RANITIDINE
  4. LANSOPRAZOLE. [Suspect]
     Active Substance: LANSOPRAZOLE

REACTIONS (1)
  - Tubulointerstitial nephritis [Recovered/Resolved]
